FAERS Safety Report 4436247-8 (Version None)
Quarter: 2004Q3

REPORT INFORMATION
  Report Type: 
  Country: None (occurrence: None)
  Receive Date: 20040830
  Receipt Date: 20040609
  Transmission Date: 20050211
  Serious: Yes (Other)
  Sender: FDA-Public Use
  Company Number: US-BRISTOL-MYERS SQUIBB COMPANY-12611091

PATIENT

DRUGS (1)
  1. ERBITUX [Suspect]

REACTIONS (1)
  - HYPERSENSITIVITY [None]
